FAERS Safety Report 7144787-6 (Version None)
Quarter: 2010Q4

REPORT INFORMATION
  Report Type: 
  Country: None (occurrence: None)
  Receive Date: 20101112
  Receipt Date: 20100722
  Transmission Date: 20110411
  Serious: No
  Sender: FDA-Public Use
  Company Number: 1000015276

PATIENT
  Age: 70 Year
  Sex: Female

DRUGS (14)
  1. SAVELLA [Suspect]
     Indication: FIBROMYALGIA
     Dosage: 12.5 MG (12.5 MG 1 IN1 D),ORAL; 25 MG (12.5 MG, 2 IN 1 D), ORAL; 50 MG (25 MG, 2 IN 1 D), ORAL
     Route: 048
     Dates: start: 20100511, end: 20100511
  2. SAVELLA [Suspect]
     Indication: FIBROMYALGIA
     Dosage: 12.5 MG (12.5 MG 1 IN1 D),ORAL; 25 MG (12.5 MG, 2 IN 1 D), ORAL; 50 MG (25 MG, 2 IN 1 D), ORAL
     Route: 048
     Dates: start: 20100512, end: 20100513
  3. SAVELLA [Suspect]
     Indication: FIBROMYALGIA
     Dosage: 12.5 MG (12.5 MG 1 IN1 D),ORAL; 25 MG (12.5 MG, 2 IN 1 D), ORAL; 50 MG (25 MG, 2 IN 1 D), ORAL
     Route: 048
     Dates: start: 20100514, end: 20100517
  4. SAVELLA [Suspect]
     Indication: FIBROMYALGIA
     Dosage: 100 MG (50 MG, 2 IN 1 D), ORAL
     Route: 048
     Dates: start: 20100518, end: 20100524
  5. OMEPRAZOLE [Concomitant]
  6. LISINOPRIL [Concomitant]
  7. METFORMIN [Concomitant]
  8. HYDROCHLOROTHIAZIDE [Concomitant]
  9. CRESTOR [Concomitant]
  10. AMITRIPTYLINE [Concomitant]
  11. ASTELIN SPRAY [Concomitant]
  12. ASPIRIN [Concomitant]
  13. CALCIUM [Concomitant]
  14. MULTIVITAMIN [Concomitant]

REACTIONS (1)
  - INSOMNIA [None]
